FAERS Safety Report 8220836-9 (Version None)
Quarter: 2012Q1

REPORT INFORMATION
  Report Type: 
  Country: None (occurrence: None)
  Receive Date: 20120320
  Receipt Date: 20120313
  Transmission Date: 20120608
  Serious: Yes (Other)
  Sender: FDA-Public Use
  Company Number: US-PFIZER INC-2011269782

PATIENT
  Sex: Male
  Weight: 67.6 kg

DRUGS (1)
  1. LIPITOR [Suspect]
     Indication: HYPERLIPIDAEMIA
     Dosage: 40 MG, 1X/DAY
     Route: 048
     Dates: end: 20111103

REACTIONS (8)
  - MUSCLE RUPTURE [None]
  - PAIN IN EXTREMITY [None]
  - ASTHENIA [None]
  - CHROMATURIA [None]
  - HEADACHE [None]
  - FATIGUE [None]
  - MYALGIA [None]
  - ARTHRALGIA [None]
